FAERS Safety Report 24259744 (Version 1)
Quarter: 2024Q3

REPORT INFORMATION
  Report Type: Spontaneous
  Country: ES (occurrence: None)
  Receive Date: 20240828
  Receipt Date: 20240828
  Transmission Date: 20241016
  Serious: Yes (Other)
  Sender: ASTRAZENECA
  Company Number: 2024A194663

PATIENT
  Age: 82 Year
  Sex: Female

DRUGS (15)
  1. QUETIAPINE [Suspect]
     Active Substance: QUETIAPINE
     Indication: Adjustment disorder with depressed mood
     Dosage: 100 MG EVERY 24 HOURS
     Route: 042
     Dates: start: 20120820, end: 20240304
  2. QUETIAPINE [Suspect]
     Active Substance: QUETIAPINE
     Indication: Adjustment disorder with depressed mood
     Dosage: STRENGTH 25 MG, 1-0-2-0
  3. QUETIAPINE [Suspect]
     Active Substance: QUETIAPINE
     Indication: Adjustment disorder with depressed mood
     Dosage: STRENGTH 25 MG, 0-0-1
  4. QUETIAPINE [Suspect]
     Active Substance: QUETIAPINE
     Indication: Adjustment disorder with depressed mood
     Dosage: STRENGTH 25 MG, 0-0-0-0-0.5
  5. ANAFRANIL [Suspect]
     Active Substance: CLOMIPRAMINE HYDROCHLORIDE
     Indication: Adjustment disorder with depressed mood
     Dosage: 75MG/24 HOURS, 0-0-0-3
     Dates: start: 20231117, end: 20240304
  6. ANAFRANIL [Suspect]
     Active Substance: CLOMIPRAMINE HYDROCHLORIDE
     Indication: Adjustment disorder with depressed mood
     Dosage: STRENGTH:25 MG, 0-0-0-2
  7. NEURONTIN [Concomitant]
     Active Substance: GABAPENTIN
     Indication: Pain
     Dosage: 300 MG EVERY 8 HOURS/TID, 1-1-1-0-0
     Dates: start: 20190522
  8. ROSUVASTATIN [Concomitant]
     Active Substance: ROSUVASTATIN\ROSUVASTATIN CALCIUM
     Dosage: 5 MG EVERY DAY
     Dates: start: 20130129
  9. LORMETAZEPAM [Concomitant]
     Active Substance: LORMETAZEPAM
     Dosage: 0-0-1-0
  10. LEVOTHYROXINE SODIUM [Concomitant]
     Active Substance: LEVOTHYROXINE SODIUM
     Dosage: 1-0-0-0-0
  11. DIOVAN [Concomitant]
     Active Substance: VALSARTAN
     Dosage: 1-0-0-0-0
  12. ASPIRIN [Concomitant]
     Active Substance: ASPIRIN
     Dosage: 0-1-0-0
  13. LEVOTHYROXINE SODIUM [Concomitant]
     Active Substance: LEVOTHYROXINE SODIUM
  14. VALSARTAN [Concomitant]
     Active Substance: VALSARTAN
  15. ASPIRIN [Concomitant]
     Active Substance: ASPIRIN

REACTIONS (6)
  - Tremor [Recovering/Resolving]
  - Gait disturbance [Recovered/Resolved]
  - Cerebral atrophy [Recovering/Resolving]
  - White matter lesion [Unknown]
  - Folate deficiency [Unknown]
  - Off label use [Recovered/Resolved]

NARRATIVE: CASE EVENT DATE: 20120820
